FAERS Safety Report 15917357 (Version 1)
Quarter: 2019Q1

REPORT INFORMATION
  Report Type: Spontaneous
  Country: GB (occurrence: GB)
  Receive Date: 20190205
  Receipt Date: 20190205
  Transmission Date: 20190417
  Serious: Yes (Other)
  Sender: FDA-Public Use
  Company Number: GB-AUROBINDO-AUR-APL-2019-005058

PATIENT

DRUGS (1)
  1. NAPROXEN TABLET [Suspect]
     Active Substance: NAPROXEN
     Indication: PAIN
     Dosage: 1000 MILLIGRAM, DAILY
     Route: 048
     Dates: start: 20190107

REACTIONS (3)
  - Increased tendency to bruise [Unknown]
  - Skin atrophy [Unknown]
  - Skin irritation [Unknown]
